FAERS Safety Report 25773246 (Version 4)
Quarter: 2025Q4

REPORT INFORMATION
  Report Type: Spontaneous
  Country: US (occurrence: US)
  Receive Date: 20250908
  Receipt Date: 20251009
  Transmission Date: 20260118
  Serious: No
  Sender: PFIZER
  Company Number: US-PFIZER INC-202500175291

PATIENT
  Age: 14 Year
  Sex: Male
  Weight: 42.64 kg

DRUGS (2)
  1. GENOTROPIN [Suspect]
     Active Substance: SOMATROPIN
     Indication: Growth hormone deficiency
     Dosage: 1.8MG EVERY NIGHT IN HIS BELLY OR THIGH, IN THE FATTY TISSUE
     Route: 058
     Dates: start: 202411
  2. VYVANSE [Concomitant]
     Active Substance: LISDEXAMFETAMINE DIMESYLATE
     Indication: Attention deficit hyperactivity disorder
     Dosage: 30MG CAPSULE STANDARD RELEASE EVERY DAY BY MOUTH
     Route: 048

REACTIONS (4)
  - Device physical property issue [Unknown]
  - Device material issue [Unknown]
  - Device deployment issue [Unknown]
  - Drug dose omission by device [Unknown]
